FAERS Safety Report 5287610-7 (Version None)
Quarter: 2007Q1

REPORT INFORMATION
  Report Type: 
  Country: None (occurrence: None)
  Receive Date: 20070124
  Receipt Date: 20060320
  Transmission Date: 20070707
  Serious: Yes (Hospitalization)
  Sender: FDA-Public Use
  Company Number: WAES 0603USA03142

PATIENT
  Age: 85 Year
  Sex: Female

DRUGS (1)
  1. INVANZ [Suspect]
     Indication: INFECTION
     Dosage: 1 GM/DAILY/INJ
     Dates: start: 20060301, end: 20060301

REACTIONS (1)
  - CONVULSION [None]
